FAERS Safety Report 8091807-0 (Version None)
Quarter: 2012Q1

REPORT INFORMATION
  Report Type: 
  Country: None (occurrence: None)
  Receive Date: 20120125
  Receipt Date: 20120112
  Transmission Date: 20120608
  Serious: Yes (Hospitalization, Other)
  Sender: FDA-Public Use
  Company Number: NSR_00296_2011

PATIENT
  Age: 48 Year
  Sex: Female

DRUGS (1)
  1. LAMOTRIGINE [Suspect]
     Indication: PRODUCT USED FOR UNKNOWN INDICATION
     Dosage: (DF [ESTIMATED 7.5 G])

REACTIONS (18)
  - TACHYCARDIA [None]
  - BLOOD POTASSIUM DECREASED [None]
  - BLOOD CALCIUM DECREASED [None]
  - ACIDOSIS [None]
  - OVERDOSE [None]
  - GRAND MAL CONVULSION [None]
  - ELECTROCARDIOGRAM QT PROLONGED [None]
  - PULSE ABSENT [None]
  - NODAL ARRHYTHMIA [None]
  - CARDIOTOXICITY [None]
  - STATUS EPILEPTICUS [None]
  - NEUROTOXICITY [None]
  - ELECTROCARDIOGRAM QRS COMPLEX PROLONGED [None]
  - LOSS OF CONSCIOUSNESS [None]
  - BRAIN OEDEMA [None]
  - CIRCULATORY COLLAPSE [None]
  - HYPOXIC-ISCHAEMIC ENCEPHALOPATHY [None]
  - BLOOD GLUCOSE INCREASED [None]
